FAERS Safety Report 8394321-8 (Version None)
Quarter: 2012Q2

REPORT INFORMATION
  Report Type: 
  Country: None (occurrence: None)
  Receive Date: 20120530
  Receipt Date: 20120522
  Transmission Date: 20120825
  Serious: Yes (Life-Threatening, Hospitalization, Other)
  Sender: FDA-Public Use
  Company Number: US-JNJFOC-20120304306

PATIENT
  Sex: Female

DRUGS (1)
  1. INFLIXIMAB, RECOMBINANT [Suspect]
     Indication: CROHN'S DISEASE
     Dosage: ON INFLIXIMAB FOR PAST 11 MONTHS
     Route: 042
     Dates: start: 20090301

REACTIONS (3)
  - LUPUS-LIKE SYNDROME [None]
  - ATRIAL FIBRILLATION [None]
  - PNEUMONIA [None]
